FAERS Safety Report 6903364-X (Version None)
Quarter: 2010Q3

REPORT INFORMATION
  Report Type: 
  Country: None (occurrence: None)
  Receive Date: 20100803
  Receipt Date: 20080923
  Transmission Date: 20110219
  Serious: Yes (Other)
  Sender: FDA-Public Use
  Company Number: US-PFIZER INC-2008081122

PATIENT
  Sex: Female
  Weight: 79.4 kg

DRUGS (4)
  1. LYRICA [Suspect]
     Indication: FIBROMYALGIA
     Dates: start: 20080901, end: 20080901
  2. ZOLOFT [Concomitant]
  3. NEXIUM [Concomitant]
  4. ORAL CONTRACEPTIVE NOS [Concomitant]

REACTIONS (8)
  - DIZZINESS [None]
  - DYSARTHRIA [None]
  - FEELING DRUNK [None]
  - IMPAIRED DRIVING ABILITY [None]
  - MIGRAINE [None]
  - NAUSEA [None]
  - SYNCOPE [None]
  - VOMITING [None]
